FAERS Safety Report 23214178 (Version 1)
Quarter: 2023Q4

REPORT INFORMATION
  Report Type: Spontaneous
  Country: US (occurrence: None)
  Receive Date: 20231121
  Receipt Date: 20231121
  Transmission Date: 20240110
  Serious: Yes (Hospitalization)
  Sender: FDA-Public Use
  Company Number: None

PATIENT
  Age: 46 Year
  Sex: Female
  Weight: 115 kg

DRUGS (1)
  1. LINEZOLID [Suspect]
     Active Substance: LINEZOLID
     Indication: Necrotising fasciitis
     Dosage: FREQUENCY : TWICE A DAY;?
     Route: 048
     Dates: start: 20231026, end: 20231120

REACTIONS (1)
  - Anaemia [None]

NARRATIVE: CASE EVENT DATE: 20231120
